FAERS Safety Report 17574903 (Version 1)
Quarter: 2020Q1

REPORT INFORMATION
  Report Type: Report from Study
  Country: KR (occurrence: KR)
  Receive Date: 20200324
  Receipt Date: 20200324
  Transmission Date: 20200409
  Serious: Yes (Other)
  Sender: FDA-Public Use
  Company Number: KR-SUN PHARMACEUTICAL INDUSTRIES LTD-2020RR-241435

PATIENT
  Age: 51 Year
  Sex: Male

DRUGS (1)
  1. PARACETAMOL [Suspect]
     Active Substance: ACETAMINOPHEN
     Indication: PRODUCT USED FOR UNKNOWN INDICATION
     Dosage: 279.6 MILLIGRAM/KILOGRAM, UNK
     Route: 048

REACTIONS (4)
  - Toxicity to various agents [Unknown]
  - Procalcitonin increased [Unknown]
  - Hepatomegaly [Unknown]
  - Hepatic steatosis [Unknown]
